FAERS Safety Report 8511621-9 (Version None)
Quarter: 2012Q3

REPORT INFORMATION
  Report Type: 
  Country: None (occurrence: None)
  Receive Date: 20120716
  Receipt Date: 20120712
  Transmission Date: 20120928
  Serious: Yes (Other)
  Sender: FDA-Public Use
  Company Number: ZA-PFIZER INC-2012168830

PATIENT
  Age: 44 Year
  Sex: Female

DRUGS (1)
  1. VARENICLINE TARTRATE [Suspect]
     Indication: SMOKING CESSATION THERAPY
     Dosage: 1 MG, 2X/DAY (BD)
     Route: 048
     Dates: start: 20120508, end: 20120625

REACTIONS (3)
  - EYE SWELLING [None]
  - DRY SKIN [None]
  - PRURITUS [None]
